FAERS Safety Report 6095336-5 (Version None)
Quarter: 2009Q1

REPORT INFORMATION
  Report Type: 
  Country: None (occurrence: None)
  Receive Date: 20090227
  Receipt Date: 20080311
  Transmission Date: 20090719
  Serious: No
  Sender: FDA-Public Use
  Company Number: A0714601A

PATIENT
  Age: 17 Year
  Sex: Female

DRUGS (3)
  1. LAMICTAL [Suspect]
     Indication: MOOD SWINGS
     Dosage: 25MG PER DAY
     Route: 048
     Dates: start: 20080213, end: 20080309
  2. LANTUS [Concomitant]
  3. HUMALOG [Concomitant]

REACTIONS (2)
  - RASH [None]
  - RASH PRURITIC [None]
